FAERS Safety Report 4344989-8 (Version None)
Quarter: 2004Q2

REPORT INFORMATION
  Report Type: 
  Country: None (occurrence: None)
  Receive Date: 20040420
  Receipt Date: 20040405
  Transmission Date: 20050107
  Serious: Yes (Hospitalization, Other)
  Sender: FDA-Public Use
  Company Number: 235928

PATIENT
  Sex: Female
  Weight: 4.5 kg

DRUGS (2)
  1. INSULIN ASPART [Suspect]
     Indication: DIABETES MELLITUS
     Dosage: 30 IU, QD, SUBCUTANEOUS
     Route: 064
     Dates: start: 20030111
  2. PROTAPHANE PENFILL (INSULIN HUMAN) SUSPENSION FOR INJECTION [Concomitant]

REACTIONS (3)
  - CAESAREAN SECTION [None]
  - HYPOGLYCAEMIA NEONATAL [None]
  - MATERNAL DRUGS AFFECTING FOETUS [None]
